FAERS Safety Report 4760264-1 (Version None)
Quarter: 2005Q3

REPORT INFORMATION
  Report Type: 
  Country: None (occurrence: None)
  Receive Date: 20050902
  Receipt Date: 20050818
  Transmission Date: 20060218
  Serious: Yes (Other)
  Sender: FDA-Public Use
  Company Number: MK-ROCHE-414919

PATIENT
  Sex: Female

DRUGS (1)
  1. BONDRONAT [Suspect]
     Dosage: DOSE REPORTED AS 6MG/500ML INDICATION REPORTED AS METASTASES BONE DISEASE
     Route: 042

REACTIONS (1)
  - ANAPHYLACTOID REACTION [None]
